FAERS Safety Report 18297496 (Version 1)
Quarter: 2020Q3

REPORT INFORMATION
  Report Type: Spontaneous
  Country: CO (occurrence: CO)
  Receive Date: 20200922
  Receipt Date: 20200922
  Transmission Date: 20201103
  Serious: Yes (Other)
  Sender: FDA-Public Use
  Company Number: CO-BAYER-2020-170053

PATIENT
  Age: 41 Year
  Sex: Male

DRUGS (1)
  1. CIPROFLOXACIN BETAIN [Suspect]
     Active Substance: CIPROFLOXACIN
     Dosage: 400 MG
     Route: 042

REACTIONS (1)
  - Systemic inflammatory response syndrome [Recovered/Resolved]
